FAERS Safety Report 19386647 (Version 1)
Quarter: 2021Q2

REPORT INFORMATION
  Report Type: Spontaneous
  Country: US (occurrence: US)
  Receive Date: 20210607
  Receipt Date: 20210607
  Transmission Date: 20210717
  Serious: No
  Sender: FDA-Public Use
  Company Number: None

PATIENT
  Age: 92 Year
  Sex: Male

DRUGS (1)
  1. LISINOPRIL. [Suspect]
     Active Substance: LISINOPRIL
     Indication: HYPERTENSION
     Route: 048
     Dates: start: 20210512, end: 20210515

REACTIONS (8)
  - Urinary sediment present [None]
  - Renal tubular necrosis [None]
  - Acute kidney injury [None]
  - Infection [None]
  - Urinary tract infection staphylococcal [None]
  - Hypovolaemia [None]
  - Renal ischaemia [None]
  - Renal tubular injury [None]

NARRATIVE: CASE EVENT DATE: 20210517
